FAERS Safety Report 5116817-4 (Version None)
Quarter: 2006Q3

REPORT INFORMATION
  Report Type: 
  Country: None (occurrence: None)
  Receive Date: 20060925
  Receipt Date: 20060911
  Transmission Date: 20061208
  Serious: Yes (Hospitalization)
  Sender: FDA-Public Use
  Company Number: 2006112369

PATIENT
  Sex: Male

DRUGS (3)
  1. CELEBREX [Suspect]
     Dates: start: 20000101, end: 20040930
  2. BEXTRA [Suspect]
     Dates: start: 20040715, end: 20040824
  3. VIOXX [Suspect]
     Dosage: ORAL
     Route: 048
     Dates: start: 19990601, end: 20040930

REACTIONS (1)
  - CEREBROVASCULAR ACCIDENT [None]
